FAERS Safety Report 6931763-9 (Version None)
Quarter: 2010Q3

REPORT INFORMATION
  Report Type: 
  Country: None (occurrence: None)
  Receive Date: 20100819
  Receipt Date: 20100809
  Transmission Date: 20110219
  Serious: Yes (Other)
  Sender: FDA-Public Use
  Company Number: JP-PFIZER INC-2010099653

PATIENT
  Age: 62 Year
  Sex: Male

DRUGS (3)
  1. LIPITOR [Suspect]
     Dosage: 10 MG, DAILY
     Route: 048
     Dates: start: 20030712
  2. SQUALANE [Concomitant]
     Dosage: UNK
     Route: 048
     Dates: start: 20081125, end: 20100315
  3. HALCION [Concomitant]
     Dosage: UNK
     Route: 048
     Dates: start: 20030908

REACTIONS (1)
  - HERPES ZOSTER [None]
